FAERS Safety Report 16051749 (Version 1)
Quarter: 2019Q1

REPORT INFORMATION
  Report Type: Spontaneous
  Country: US (occurrence: US)
  Receive Date: 20190308
  Receipt Date: 20190308
  Transmission Date: 20190418
  Serious: No
  Sender: FDA-Public Use
  Company Number: US-TEVA-2019-US-1012137

PATIENT
  Sex: Male

DRUGS (1)
  1. METFORMIN HYDROCHLORIDE ER ACTAVIS [Suspect]
     Active Substance: METFORMIN HYDROCHLORIDE
     Indication: DIABETES MELLITUS
     Dosage: IN THE MORNING

REACTIONS (2)
  - Drug ineffective [Unknown]
  - Product substitution issue [Unknown]
